FAERS Safety Report 18038328 (Version 4)
Quarter: 2020Q4

REPORT INFORMATION
  Report Type: Spontaneous
  Country: US (occurrence: US)
  Receive Date: 20200718
  Receipt Date: 20201005
  Transmission Date: 20210113
  Serious: No
  Sender: FDA-Public Use
  Company Number: US-AMGEN-USASP2020108719

PATIENT
  Age: 63 Year
  Sex: Female

DRUGS (6)
  1. FORTEO [Suspect]
     Active Substance: TERIPARATIDE
     Indication: OSTEOPOROSIS
     Dosage: UNK
     Route: 065
  2. EVENITY [Suspect]
     Active Substance: ROMOSOZUMAB-AQQG
     Indication: OSTEOPOROSIS
     Dosage: UNK UNK, QMO
     Route: 065
     Dates: start: 201912, end: 202006
  3. BONITA [CHLORMADINONE ACETATE;ETHINYLESTRADIOL] [Suspect]
     Active Substance: CHLORMADINONE ACETATE\ETHINYL ESTRADIOL
     Indication: OSTEOPOROSIS
     Dosage: UNK
     Route: 065
  4. ACTONEL [Suspect]
     Active Substance: RISEDRONATE SODIUM
     Indication: OSTEOPOROSIS
     Dosage: UNK
     Route: 065
  5. VITAMIN D [COLECALCIFEROL] [Concomitant]
     Active Substance: CHOLECALCIFEROL
     Dosage: UNK
     Route: 065
  6. FOSAMAX [Suspect]
     Active Substance: ALENDRONATE SODIUM
     Indication: OSTEOPOROSIS
     Dosage: UNK
     Route: 065

REACTIONS (18)
  - Anxiety [Unknown]
  - Peripheral swelling [Recovering/Resolving]
  - Dark circles under eyes [Unknown]
  - Blood glucose abnormal [Unknown]
  - Arthralgia [Unknown]
  - Weight increased [Not Recovered/Not Resolved]
  - Insomnia [Recovering/Resolving]
  - Myalgia [Unknown]
  - Pallor [Unknown]
  - Hypoaesthesia [Recovered/Resolved]
  - Swelling face [Recovering/Resolving]
  - Headache [Not Recovered/Not Resolved]
  - Thyroid hormones increased [Unknown]
  - Musculoskeletal discomfort [Recovering/Resolving]
  - Pain [Unknown]
  - Abdominal distension [Recovering/Resolving]
  - Dizziness [Unknown]
  - General physical condition abnormal [Unknown]

NARRATIVE: CASE EVENT DATE: 201912
